FAERS Safety Report 25815581 (Version 1)
Quarter: 2025Q3

REPORT INFORMATION
  Report Type: Spontaneous
  Country: EU (occurrence: EU)
  Receive Date: 20250918
  Receipt Date: 20250918
  Transmission Date: 20251020
  Serious: Yes (Hospitalization, Other)
  Sender: ALEXION PHARMACEUTICALS
  Company Number: None

PATIENT
  Age: 68 Year
  Sex: Female

DRUGS (2)
  1. IMFINZI [Suspect]
     Active Substance: DURVALUMAB
     Indication: Cholangiocarcinoma
  2. ATORVASTATIN [Suspect]
     Active Substance: ATORVASTATIN

REACTIONS (5)
  - Immune-mediated hypothyroidism [Recovered/Resolved with Sequelae]
  - Asthenia [Recovering/Resolving]
  - Adrenal insufficiency [Recovering/Resolving]
  - Paraesthesia [Recovering/Resolving]
  - Back pain [Recovering/Resolving]

NARRATIVE: CASE EVENT DATE: 20250711
